FAERS Safety Report 5387262-1 (Version None)
Quarter: 2007Q3

REPORT INFORMATION
  Report Type: 
  Country: None (occurrence: None)
  Receive Date: 20070706
  Receipt Date: 20070504
  Transmission Date: 20080115
  Serious: Yes (Other)
  Sender: FDA-Public Use
  Company Number: PHEH2007US06385

PATIENT
  Age: 55 Year
  Sex: Male

DRUGS (2)
  1. TEKTURNA [Suspect]
     Indication: HYPERTENSION
     Dosage: 150 MG, QD
  2. DIOVAN [Concomitant]

REACTIONS (2)
  - ANGIOEDEMA [None]
  - PERIORBITAL OEDEMA [None]
